FAERS Safety Report 4863953-3 (Version None)
Quarter: 2005Q4

REPORT INFORMATION
  Report Type: 
  Country: None (occurrence: None)
  Receive Date: 20051219
  Receipt Date: 20051219
  Transmission Date: 20060501
  Serious: No
  Sender: FDA-Public Use
  Company Number: None

PATIENT
  Age: 64 Year
  Sex: Male
  Weight: 81.6475 kg

DRUGS (1)
  1. CYPHER CORONARY STENT  CORDIS CORP.'S [Suspect]
     Indication: MYOCARDIAL INFARCTION
     Dosage: SIROLIMUS  PERMANENT  INTRA-ARTERIAL
     Route: 013
     Dates: start: 20001012, end: 20051216

REACTIONS (2)
  - PAIN IN EXTREMITY [None]
  - PHARMACEUTICAL PRODUCT COMPLAINT [None]
